FAERS Safety Report 4316395-3 (Version None)
Quarter: 2004Q1

REPORT INFORMATION
  Report Type: 
  Country: None (occurrence: None)
  Receive Date: 20040311
  Receipt Date: 20040304
  Transmission Date: 20041129
  Serious: Yes (Hospitalization)
  Sender: FDA-Public Use
  Company Number: 2004006384

PATIENT
  Age: 2 Year
  Sex: Female

DRUGS (3)
  1. UNASYN [Suspect]
     Indication: URINARY TRACT INFECTION
     Dosage: 1.2 GRAM (TID), INTRAVENOUS
     Route: 042
     Dates: start: 20031201, end: 20040115
  2. PIPERACILLIN SODIUM [Suspect]
     Indication: URINARY TRACT INFECTION
     Dosage: 1.5 GRAM (TID), INTRAVENOUS
     Route: 042
     Dates: start: 20031224, end: 20040112
  3. ACETAMINOPHEN [Suspect]
     Indication: PYREXIA
     Dosage: 100 MG, RECTAL
     Route: 054
     Dates: start: 20040111, end: 20040116

REACTIONS (2)
  - DRUG INEFFECTIVE [None]
  - EXANTHEM [None]
